FAERS Safety Report 10179586 (Version 1)
Quarter: 2014Q2

REPORT INFORMATION
  Report Type: Spontaneous
  Country: US (occurrence: US)
  Receive Date: 20140519
  Receipt Date: 20140519
  Transmission Date: 20141212
  Serious: No
  Sender: FDA-Public Use
  Company Number: US-PFIZER INC-2014134870

PATIENT
  Sex: 0

DRUGS (1)
  1. AMIODARONE HCL [Suspect]
     Dosage: HIGHER DOSE

REACTIONS (1)
  - Visual impairment [Unknown]
